FAERS Safety Report 15654259 (Version 6)
Quarter: 2018Q4

REPORT INFORMATION
  Report Type: Report from Study
  Country: US (occurrence: US)
  Receive Date: 20181125
  Receipt Date: 20181220
  Transmission Date: 20190205
  Serious: Yes (Death, Life-Threatening, Hospitalization, Other)
  Sender: FDA-Public Use
  Company Number: US-BRISTOL-MYERS SQUIBB COMPANY-BMS-2018-109173

PATIENT
  Age: 68 Year
  Sex: Male
  Weight: 70.3 kg

DRUGS (2)
  1. NIVOLUMAB [Suspect]
     Active Substance: NIVOLUMAB
     Indication: MYELODYSPLASTIC SYNDROME
     Dosage: 3 MG/KG, OVER 30-60 MINUTES ON DAYS 1 AND 15
     Route: 042
     Dates: start: 20181017, end: 20181017
  2. AZACITIDINE. [Suspect]
     Active Substance: AZACITIDINE
     Indication: MYELODYSPLASTIC SYNDROME
     Dosage: 75 MG/M2, QD ON DAYS 1-7
     Route: 065
     Dates: start: 20181017, end: 20181023

REACTIONS (4)
  - Death [Fatal]
  - Nephrolithiasis [Unknown]
  - Multiple organ dysfunction syndrome [Unknown]
  - Haemoglobin decreased [Unknown]
